FAERS Safety Report 7251351-7 (Version None)
Quarter: 2011Q1

REPORT INFORMATION
  Report Type: 
  Country: None (occurrence: None)
  Receive Date: 20110128
  Receipt Date: 20110124
  Transmission Date: 20110831
  Serious: Yes (Hospitalization, Disabling)
  Sender: FDA-Public Use
  Company Number: HR-ROCHE-674413

PATIENT
  Sex: Male
  Weight: 67.9 kg

DRUGS (19)
  1. METHOXY POLYETHYLENE GLYCOL-EPOETIN BETA [Suspect]
     Dosage: LAST DOSE PRIOR TO SAE: 07 DECEMBER 2009
     Route: 058
  2. CALCITRIOL [Concomitant]
     Dates: start: 20080516
  3. FOLIC ACID [Concomitant]
     Dates: start: 20090814
  4. SIMVASTATIN [Concomitant]
     Dates: start: 20100625
  5. METHOXY POLYETHYLENE GLYCOL-EPOETIN BETA [Suspect]
     Dosage: DATE OF LAST DOSE PRIOR TO SAE: 08 OCTOBER 2010
     Route: 058
  6. AMLODIPINE [Concomitant]
     Dates: start: 20071005
  7. CARVEDILOL [Concomitant]
     Dates: start: 20090531
  8. LACIDIPINE [Concomitant]
     Dates: start: 20100104
  9. CALCIUM CARBONATE [Concomitant]
     Dates: start: 20080630
  10. PANTOPRAZOL [Concomitant]
     Dates: start: 20090123
  11. GLIQUIDONE [Concomitant]
     Dates: start: 20091228
  12. LACIDIPINE [Concomitant]
     Dates: start: 20100830
  13. METHOXY POLYETHYLENE GLYCOL-EPOETIN BETA [Suspect]
     Route: 058
     Dates: start: 20090608
  14. GLIQUIDONE [Concomitant]
     Dates: start: 20070915
  15. ISOSORBIDE MONONITRATE [Concomitant]
     Dates: start: 20070730
  16. ACETYLSALICYLIC ACID SRT [Concomitant]
     Dates: start: 20100108
  17. FUROSEMIDE [Concomitant]
     Dates: start: 20100101
  18. METHOXY POLYETHYLENE GLYCOL-EPOETIN BETA [Suspect]
     Dosage: LAST DOSE PRIOR TO EVENT: 09 JULY 2010
     Route: 058
  19. LISINOPRIL [Concomitant]
     Dates: start: 20071005

REACTIONS (6)
  - ISCHAEMIC STROKE [None]
  - PERIPHERAL ARTERIAL OCCLUSIVE DISEASE [None]
  - ARTERIOVENOUS FISTULA THROMBOSIS [None]
  - DEVICE MALFUNCTION [None]
  - FEMORAL ARTERY OCCLUSION [None]
  - CAROTID ARTERY STENOSIS [None]
